FAERS Safety Report 15954001 (Version 2)
Quarter: 2019Q1

REPORT INFORMATION
  Report Type: Spontaneous
  Country: US (occurrence: US)
  Receive Date: 20190212
  Receipt Date: 20190326
  Transmission Date: 20190417
  Serious: Yes (Other)
  Sender: FDA-Public Use
  Company Number: US-ASTRAZENECA-2019SE22923

PATIENT
  Age: 871 Month
  Sex: Female
  Weight: 61.2 kg

DRUGS (9)
  1. CLARITIN [Concomitant]
     Active Substance: LORATADINE
     Indication: ALLERGY PROPHYLAXIS
     Route: 048
     Dates: start: 201806
  2. ALIGN PROBIOTIC [Concomitant]
     Indication: COLITIS
     Route: 048
     Dates: start: 201806
  3. TUDORZA PRESSAIR [Suspect]
     Active Substance: ACLIDINIUM BROMIDE
     Indication: CHRONIC OBSTRUCTIVE PULMONARY DISEASE
     Route: 055
     Dates: start: 2011
  4. BYSTOLIC [Concomitant]
     Active Substance: NEBIVOLOL HYDROCHLORIDE
     Indication: BLOOD PRESSURE MEASUREMENT
     Route: 048
     Dates: start: 2014
  5. ATORVASTATIN [Concomitant]
     Active Substance: ATORVASTATIN
     Indication: BLOOD CHOLESTEROL
     Route: 048
     Dates: start: 2014
  6. ADVAIR HFA [Concomitant]
     Active Substance: FLUTICASONE PROPIONATE\SALMETEROL XINAFOATE
     Indication: CHRONIC OBSTRUCTIVE PULMONARY DISEASE
     Dosage: 250 TWO TIMES A DAY
     Route: 055
  7. CITRACAL CALCIUM SUPPLEMENT [Concomitant]
     Indication: CALCIUM DEFICIENCY
     Route: 048
  8. VALSARTAN. [Concomitant]
     Active Substance: VALSARTAN
     Indication: BLOOD CHOLESTEROL
     Route: 048
     Dates: start: 201806
  9. PREMARIN [Concomitant]
     Active Substance: ESTROGENS, CONJUGATED
     Indication: HORMONE REPLACEMENT THERAPY
     Route: 048
     Dates: start: 1998

REACTIONS (9)
  - Small cell lung cancer [Unknown]
  - Product dose omission [Unknown]
  - Blood cholesterol increased [Unknown]
  - Panic disorder [Unknown]
  - Blood pressure decreased [Unknown]
  - Bone cancer [Unknown]
  - Blood pressure increased [Unknown]
  - Hypersensitivity [Unknown]
  - Device malfunction [Unknown]

NARRATIVE: CASE EVENT DATE: 201806
